FAERS Safety Report 7474162-6 (Version None)
Quarter: 2011Q2

REPORT INFORMATION
  Report Type: 
  Country: None (occurrence: None)
  Receive Date: 20110511
  Receipt Date: 20110428
  Transmission Date: 20111010
  Serious: Yes (Other)
  Sender: FDA-Public Use
  Company Number: PHHY2011AU37275

PATIENT
  Sex: Male

DRUGS (1)
  1. AFINITOR [Suspect]
     Indication: HEPATIC NEOPLASM MALIGNANT RESECTABLE
     Dates: start: 20110301

REACTIONS (6)
  - PARAESTHESIA [None]
  - OEDEMA PERIPHERAL [None]
  - COUGH [None]
  - RASH [None]
  - JOINT SWELLING [None]
  - VOMITING [None]
